FAERS Safety Report 6286648-0 (Version None)
Quarter: 2009Q3

REPORT INFORMATION
  Report Type: 
  Country: None (occurrence: None)
  Receive Date: 20090728
  Receipt Date: 20090717
  Transmission Date: 20100115
  Serious: Yes (Other)
  Sender: FDA-Public Use
  Company Number: PHHY2009MX29983

PATIENT
  Sex: Female

DRUGS (2)
  1. ACLASTA [Suspect]
     Indication: OSTEOPOROSIS
     Dosage: 5 MG/ 100 ML PER YEAR
     Route: 042
     Dates: start: 20081114
  2. INSULIN [Concomitant]
     Indication: DIABETES MELLITUS

REACTIONS (4)
  - ABDOMINAL PAIN [None]
  - BACK PAIN [None]
  - COLITIS [None]
  - GASTRITIS [None]
